FAERS Safety Report 7499374-7 (Version None)
Quarter: 2011Q2

REPORT INFORMATION
  Report Type: 
  Country: None (occurrence: None)
  Receive Date: 20110516
  Receipt Date: 20110504
  Transmission Date: 20111010
  Serious: Yes (Hospitalization)
  Sender: FDA-Public Use
  Company Number: UTC-006869

PATIENT
  Age: 66 Year
  Sex: Male
  Weight: 68.2 kg

DRUGS (2)
  1. TYVASO [Suspect]
     Indication: PULMONARY ARTERIAL HYPERTENSION
     Dosage: 54 MCG, INHALATION
     Route: 055
     Dates: start: 20110303
  2. DIURETICS (DIURETICS) [Concomitant]

REACTIONS (1)
  - FLUID RETENTION [None]
